FAERS Safety Report 12897014 (Version 1)
Quarter: 2016Q4

REPORT INFORMATION
  Report Type: Spontaneous
  Country: US (occurrence: US)
  Receive Date: 20161031
  Receipt Date: 20161031
  Transmission Date: 20170207
  Serious: No
  Sender: FDA-Public Use
  Company Number: US-PFIZER INC-2016504530

PATIENT
  Sex: Male

DRUGS (1)
  1. EFFEXOR XR [Suspect]
     Active Substance: VENLAFAXINE HYDROCHLORIDE
     Dosage: UNK

REACTIONS (7)
  - Abnormal dreams [Unknown]
  - Loss of libido [Unknown]
  - Headache [Unknown]
  - Apathy [Unknown]
  - Lethargy [Unknown]
  - Activities of daily living impaired [Unknown]
  - Weight increased [Unknown]
